FAERS Safety Report 26172608 (Version 2)
Quarter: 2025Q4

REPORT INFORMATION
  Report Type: Spontaneous
  Country: US (occurrence: US)
  Receive Date: 20251218
  Receipt Date: 20251224
  Transmission Date: 20260117
  Serious: Yes (Other)
  Sender: JOHNSON AND JOHNSON
  Company Number: US-JNJFOC-20251218631

PATIENT
  Age: 3 Decade
  Sex: Female

DRUGS (1)
  1. STELARA [Suspect]
     Active Substance: USTEKINUMAB
     Indication: Crohn^s disease
     Route: 058

REACTIONS (3)
  - Crohn^s disease [Unknown]
  - Exposure during pregnancy [Recovered/Resolved]
  - Drug ineffective [Unknown]
